FAERS Safety Report 6617294-4 (Version None)
Quarter: 2010Q1

REPORT INFORMATION
  Report Type: 
  Country: None (occurrence: None)
  Receive Date: 20100307
  Receipt Date: 20090824
  Transmission Date: 20100710
  Serious: No
  Sender: FDA-Public Use
  Company Number: US-BAYER-200925449NA

PATIENT
  Age: 45 Year
  Sex: Male
  Weight: 149 kg

DRUGS (21)
  1. MAGNEVIST [Suspect]
     Indication: ANGIOGRAM
     Dosage: TOTAL DAILY DOSE: 40 ML
     Route: 042
     Dates: start: 20061101, end: 20061101
  2. AVANDIA [Concomitant]
     Indication: TYPE 2 DIABETES MELLITUS
     Route: 048
  3. AMIODARONE HCL [Concomitant]
     Route: 048
  4. ASPIRIN [Concomitant]
     Route: 048
  5. LEVOTHYROXINE [Concomitant]
     Indication: HYPOTHYROIDISM
     Route: 048
  6. NEXIUM [Concomitant]
  7. CINACALCET HYDROCHLORIDE [Concomitant]
  8. PRAVACHOL [Concomitant]
     Route: 048
  9. RENAGEL [Concomitant]
     Route: 048
  10. TOPROL-XL [Concomitant]
     Route: 048
  11. PREDNISONE [Concomitant]
     Route: 048
  12. WARFARIN SODIUM [Concomitant]
     Dosage: 7.5 MG DAILY, EXCEPT SUNDAY 3.75 MG
     Route: 048
  13. NORCO [Concomitant]
     Route: 048
  14. EPOETIN ALFA [Concomitant]
     Dosage: 28000 UNITS TO BE GIVEN AT THE TIME OF HEMODIALYSIS
  15. PARICALCITOL [Concomitant]
     Dosage: TO BE GIVEN WITH HEMODIALYS
     Route: 042
  16. AMPHOJEL [Concomitant]
     Dates: start: 20071101
  17. LISINOPRIL [Concomitant]
     Route: 048
     Dates: start: 20071101
  18. R-CHOP [Concomitant]
  19. RICE CHEMOTHERAPY X 2 [Concomitant]
     Dates: start: 20060101
  20. CELLCEPT [Concomitant]
  21. PREDNISONE [Concomitant]

REACTIONS (17)
  - BACK PAIN [None]
  - ERYTHEMA [None]
  - JAUNDICE [None]
  - LOCALISED OEDEMA [None]
  - NEPHROGENIC SYSTEMIC FIBROSIS [None]
  - OEDEMA PERIPHERAL [None]
  - PAIN IN EXTREMITY [None]
  - PAIN OF SKIN [None]
  - PEAU D'ORANGE [None]
  - PURPURA [None]
  - RASH [None]
  - SKIN EXFOLIATION [None]
  - SKIN FIBROSIS [None]
  - SKIN HYPERPIGMENTATION [None]
  - SKIN INDURATION [None]
  - SKIN NECROSIS [None]
  - VENOUS INSUFFICIENCY [None]
